FAERS Safety Report 7548567-9 (Version None)
Quarter: 2011Q2

REPORT INFORMATION
  Report Type: 
  Country: None (occurrence: None)
  Receive Date: 20110524
  Receipt Date: 20110419
  Transmission Date: 20111010
  Serious: No
  Sender: FDA-Public Use
  Company Number: 026224

PATIENT
  Sex: Female

DRUGS (1)
  1. CIMZIA [Suspect]
     Indication: CROHN'S DISEASE
     Dosage: (SUBCUTANEOUS)
     Route: 058
     Dates: start: 20091130

REACTIONS (5)
  - ABDOMINAL DISTENSION [None]
  - CHANGE OF BOWEL HABIT [None]
  - UNEVALUABLE EVENT [None]
  - INFREQUENT BOWEL MOVEMENTS [None]
  - FEELING ABNORMAL [None]
